FAERS Safety Report 24850050 (Version 1)
Quarter: 2025Q1

REPORT INFORMATION
  Report Type: Spontaneous
  Country: US (occurrence: US)
  Receive Date: 20250116
  Receipt Date: 20250116
  Transmission Date: 20250409
  Serious: No
  Sender: BAYER HEALTHCARE LLC
  Company Number: US-BAYER-2025A006593

PATIENT
  Age: 62 Year
  Sex: Male

DRUGS (1)
  1. CLARITIN [Suspect]
     Active Substance: LORATADINE
     Indication: Nasal congestion
     Dosage: 1 DF, QD
     Route: 048

REACTIONS (1)
  - Drug ineffective for unapproved indication [Unknown]
